FAERS Safety Report 7794931-2 (Version None)
Quarter: 2011Q4

REPORT INFORMATION
  Report Type: 
  Country: None (occurrence: None)
  Receive Date: 20111004
  Receipt Date: 20110928
  Transmission Date: 20120403
  Serious: Yes (Hospitalization, Other)
  Sender: FDA-Public Use
  Company Number: US-PFIZER INC-2011232205

PATIENT
  Sex: Female
  Weight: 71.202 kg

DRUGS (7)
  1. PROCHLORPERAZINE [Concomitant]
     Dosage: 10 MG, UNK
  2. ATENOLOL [Concomitant]
     Dosage: 25 MG, UNK
  3. ZANTAC [Concomitant]
     Dosage: 75 TAB
  4. ACETAMINOPHEN [Concomitant]
     Dosage: 500 MG, UNK
  5. SUTENT [Suspect]
     Dosage: 50 MG DAILY, 4 WEEKS ON AND 2 WEEKS OFF
     Route: 048
  6. LOVASTATIN [Concomitant]
     Dosage: 10 MG, UNK
  7. LORAZEPAM [Concomitant]
     Dosage: 0.5 MG, UNK

REACTIONS (5)
  - GINGIVAL DISORDER [None]
  - DYSPHAGIA [None]
  - DYSGEUSIA [None]
  - HYPERTENSION [None]
  - DYSPEPSIA [None]
